FAERS Safety Report 20742803 (Version 4)
Quarter: 2022Q4

REPORT INFORMATION
  Report Type: Report from Study
  Country: DE (occurrence: DE)
  Receive Date: 20220424
  Receipt Date: 20221104
  Transmission Date: 20230113
  Serious: Yes (Death, Life-Threatening, Hospitalization, Other)
  Sender: FDA-Public Use
  Company Number: DE-BRISTOL-MYERS SQUIBB COMPANY-2022-026373

PATIENT
  Age: 83 Year
  Sex: Female

DRUGS (4)
  1. OPDIVO [Suspect]
     Active Substance: NIVOLUMAB
     Indication: Malignant melanoma
     Dosage: DATE OF LAST DOSE PRIOR TO ONSET OF ADVERSE EVENT: 26-JUL-2021
     Route: 042
     Dates: start: 20200831, end: 20210823
  2. YERVOY [Suspect]
     Active Substance: IPILIMUMAB
     Indication: Malignant melanoma
     Route: 065
  3. UNSPECIFIED INGREDIENT [Concomitant]
     Active Substance: UNSPECIFIED INGREDIENT
     Indication: Product used for unknown indication
  4. ALBUMIN HUMAN [Concomitant]
     Active Substance: ALBUMIN HUMAN
     Indication: Product used for unknown indication

REACTIONS (12)
  - Autoimmune colitis [Fatal]
  - Encephalopathy [Fatal]
  - Acute kidney injury [Fatal]
  - Hepatic failure [Fatal]
  - Sepsis [Unknown]
  - Leukoencephalopathy [Unknown]
  - Hyperthyroidism [Unknown]
  - Retroperitoneal haematoma [Unknown]
  - Hypoglycaemia [Unknown]
  - Disorientation [Unknown]
  - Hypotension [Unknown]
  - Acidosis [Unknown]

NARRATIVE: CASE EVENT DATE: 20210816
